FAERS Safety Report 5384025-8 (Version None)
Quarter: 2007Q3

REPORT INFORMATION
  Report Type: 
  Country: None (occurrence: None)
  Receive Date: 20070711
  Receipt Date: 20070703
  Transmission Date: 20080115
  Serious: Yes (Death)
  Sender: FDA-Public Use
  Company Number: US-ROCHE-502980

PATIENT
  Age: 36 Year
  Sex: Male

DRUGS (2)
  1. ACCUTANE [Suspect]
     Indication: DRUG USE FOR UNKNOWN INDICATION
     Dosage: THE PATIENT WAS DISPENSED ACCUTANE 20 MG CAPSULE ON 23 APRIL 2007.
     Route: 065
  2. SOTRET [Suspect]
     Indication: DRUG USE FOR UNKNOWN INDICATION
     Dosage: THE PATIENT WAS DISPENSED SOTRET 20 MG  CAPSULE ON 29 MAY 2007.
     Route: 065

REACTIONS (1)
  - BRAIN NEOPLASM MALIGNANT [None]
